FAERS Safety Report 8996521 (Version 1)
Quarter: 2013Q1

REPORT INFORMATION
  Report Type: Spontaneous
  Country: US (occurrence: US)
  Receive Date: 20130104
  Receipt Date: 20130104
  Transmission Date: 20140127
  Serious: No
  Sender: FDA-Public Use
  Company Number: US-PFIZER INC-2013002723

PATIENT
  Age: 73 Year
  Sex: Male

DRUGS (2)
  1. EFFEXOR XR [Suspect]
     Dosage: 37.5 MG, UNK
  2. LIPITOR [Suspect]
     Dosage: UNK

REACTIONS (2)
  - Pruritus [Unknown]
  - Feeling abnormal [Unknown]
